FAERS Safety Report 19306654 (Version 1)
Quarter: 2021Q2

REPORT INFORMATION
  Report Type: Spontaneous
  Country: US (occurrence: US)
  Receive Date: 20210525
  Receipt Date: 20210525
  Transmission Date: 20210717
  Serious: Yes (Other)
  Sender: FDA-Public Use
  Company Number: None

PATIENT
  Age: 18 Year
  Sex: Female
  Weight: 80.1 kg

DRUGS (10)
  1. BENADRYL [Concomitant]
     Active Substance: DIPHENHYDRAMINE HYDROCHLORIDE
  2. SAPHRIS [Concomitant]
     Active Substance: ASENAPINE MALEATE
  3. VIT D [Concomitant]
     Active Substance: VITAMIN D NOS
  4. PRENATAL MULTIVITAMIN [Concomitant]
  5. ASENAPINE MALEATE SUBLINGUAL TABLETS [Suspect]
     Active Substance: ASENAPINE MALEATE
     Indication: HALLUCINATION
     Dosage: ?          QUANTITY:1 TABLET(S);?
     Route: 060
  6. ASENAPINE MALEATE SUBLINGUAL TABLETS [Suspect]
     Active Substance: ASENAPINE MALEATE
     Indication: PSYCHOTIC DISORDER
     Dosage: ?          QUANTITY:1 TABLET(S);?
     Route: 060
  7. TRIPETAL [Concomitant]
  8. ASENAPINE MALEATE SUBLINGUAL TABLETS [Suspect]
     Active Substance: ASENAPINE MALEATE
     Indication: PSYCHOMOTOR HYPERACTIVITY
     Dosage: ?          QUANTITY:1 TABLET(S);?
     Route: 060
  9. FLONASE [Concomitant]
     Active Substance: FLUTICASONE PROPIONATE
  10. ROZERUM [Concomitant]

REACTIONS (2)
  - Psychotic disorder [None]
  - Aggression [None]

NARRATIVE: CASE EVENT DATE: 20210524
